FAERS Safety Report 7827664-4 (Version None)
Quarter: 2011Q4

REPORT INFORMATION
  Report Type: 
  Country: None (occurrence: None)
  Receive Date: 20111020
  Receipt Date: 20111017
  Transmission Date: 20120403
  Serious: Yes (Death, Other)
  Sender: FDA-Public Use
  Company Number: VE-PFIZER INC-2011242197

PATIENT
  Age: 86 Year
  Sex: Female

DRUGS (2)
  1. LIPITOR [Suspect]
     Indication: HYPERCHOLESTEROLAEMIA
     Dosage: 10 MG, 1X/DAY
     Route: 048
     Dates: end: 20100101
  2. HYZAAR [Concomitant]
     Indication: HYPERTENSION
     Dosage: UNK
     Dates: end: 20100101

REACTIONS (2)
  - GASTRITIS [None]
  - CEREBROVASCULAR ACCIDENT [None]
